FAERS Safety Report 4948897-0 (Version None)
Quarter: 2006Q1

REPORT INFORMATION
  Report Type: 
  Country: None (occurrence: None)
  Receive Date: 20060321
  Receipt Date: 20060310
  Transmission Date: 20060701
  Serious: Yes (Other)
  Sender: FDA-Public Use
  Company Number: US-JNJFOC-20060304326

PATIENT
  Age: 15 Year
  Sex: Female
  Weight: 62 kg

DRUGS (7)
  1. REMICADE [Suspect]
     Indication: CROHN'S DISEASE
     Dosage: AT WEEK 0, 2, AND 6
     Route: 042
  2. 6-MP [Suspect]
  3. 6-MP [Suspect]
     Indication: DRUG USE FOR UNKNOWN INDICATION
  4. MESALAMINE [Concomitant]
  5. ORTHO TRI-CYCLEN [Concomitant]
  6. IRON [Concomitant]
  7. PREVACID [Concomitant]

REACTIONS (3)
  - ALOPECIA [None]
  - PARAESTHESIA [None]
  - RASH [None]
